FAERS Safety Report 15370571 (Version 1)
Quarter: 2018Q4

REPORT INFORMATION
  Report Type: Report from Study
  Country: AR (occurrence: AR)
  Receive Date: 20180911
  Receipt Date: 20180911
  Transmission Date: 20190204
  Serious: Yes (Death)
  Sender: FDA-Public Use
  Company Number: AR-TEVA-2018-AR-952339

PATIENT

DRUGS (6)
  1. CYCLOPHOSPHAMIDE. [Suspect]
     Active Substance: CYCLOPHOSPHAMIDE
     Indication: RETINOBLASTOMA
     Dosage: 65 MG/KG/DAY, FOUR ALTERNATING CYCLES
     Route: 065
  2. ETOPOSIDE. [Suspect]
     Active Substance: ETOPOSIDE
     Indication: RETINOBLASTOMA
     Dosage: 100 MG/M2, ON DAYS 1-3; FOUR CYCLES
     Route: 065
  3. CARBOPLATIN. [Suspect]
     Active Substance: CARBOPLATIN
     Indication: RETINOBLASTOMA
     Dosage: 500 MG/M2 ON DAYS 1 AND 2; FOUR CYCLES
     Route: 065
  4. VINCRISTINE SULFATE. [Suspect]
     Active Substance: VINCRISTINE SULFATE
     Indication: RETINOBLASTOMA
     Dosage: 0.05 MG/KG/DAY, FOUR ALTERNATING CYCLES
     Route: 065
  5. SODIUM-2-MERCAPTOETHANE SULFONATE [Suspect]
     Active Substance: MESNA
     Indication: RETINOBLASTOMA
     Dosage: FOUR ALTERNATING CYCLES
     Route: 065
  6. IDARUBICIN HYDROCHLORIDE. [Suspect]
     Active Substance: IDARUBICIN HYDROCHLORIDE
     Indication: RETINOBLASTOMA
     Dosage: 10 MG/M2/DAY, FOUR ALTERNATING CYCLES
     Route: 065

REACTIONS (2)
  - Neutropenic sepsis [Fatal]
  - Acinetobacter infection [Fatal]
